FAERS Safety Report 5278909-9 (Version None)
Quarter: 2007Q1

REPORT INFORMATION
  Report Type: 
  Country: None (occurrence: None)
  Receive Date: 20070328
  Receipt Date: 20070316
  Transmission Date: 20070707
  Serious: Yes (Hospitalization)
  Sender: FDA-Public Use
  Company Number: DE-ROCHE-477376

PATIENT
  Age: 51 Year
  Sex: Female
  Weight: 70 kg

DRUGS (3)
  1. PEG-INTERFERON A-2A (RO 25-8310) [Suspect]
     Route: 058
     Dates: start: 20060804
  2. RIBAVIRIN [Suspect]
     Indication: HEPATITIS C
     Route: 065
     Dates: start: 20060815
  3. TIAPRIDE [Concomitant]
     Indication: COORDINATION ABNORMAL
     Dosage: DOSAGE REGIMEN WAS REPORTED AS UP TO 3 X 100 MG.

REACTIONS (5)
  - CHOREA [None]
  - DEPRESSION [None]
  - NIGHT SWEATS [None]
  - PYREXIA [None]
  - SLEEP DISORDER [None]
